FAERS Safety Report 8572375-3 (Version None)
Quarter: 2012Q3

REPORT INFORMATION
  Report Type: 
  Country: None (occurrence: None)
  Receive Date: 20120806
  Receipt Date: 20120724
  Transmission Date: 20120928
  Serious: No
  Sender: FDA-Public Use
  Company Number: US-ASTRAZENECA-2012SE52241

PATIENT
  Age: 88 Year
  Sex: Female
  Weight: 51.7 kg

DRUGS (5)
  1. NEXIUM [Suspect]
     Indication: GASTROOESOPHAGEAL REFLUX DISEASE
     Route: 048
     Dates: start: 20120701
  2. CARAFATE [Suspect]
     Indication: GASTROOESOPHAGEAL REFLUX DISEASE
  3. ANTACIDS [Suspect]
     Indication: GASTROOESOPHAGEAL REFLUX DISEASE
  4. SOTALOL HYDROCHLORIDE [Concomitant]
     Indication: CEREBROVASCULAR ACCIDENT PROPHYLAXIS
  5. THYROID MEDICATION [Concomitant]
     Indication: THYROID DISORDER

REACTIONS (3)
  - GASTROOESOPHAGEAL REFLUX DISEASE [None]
  - DRUG INEFFECTIVE [None]
  - OFF LABEL USE [None]
